FAERS Safety Report 18365549 (Version 1)
Quarter: 2020Q4

REPORT INFORMATION
  Report Type: Spontaneous
  Country: US (occurrence: US)
  Receive Date: 20201009
  Receipt Date: 20201009
  Transmission Date: 20210114
  Serious: Yes (Other)
  Sender: FDA-Public Use
  Company Number: US-TEVA-2020-US-1836852

PATIENT
  Age: 59 Year
  Sex: Female

DRUGS (2)
  1. FENTANYL CITRATE. [Suspect]
     Active Substance: FENTANYL CITRATE
     Indication: BREAKTHROUGH PAIN
     Route: 048
  2. FENTANYL TRANSDERMAL SYSTEM [Concomitant]
     Active Substance: FENTANYL
     Indication: PAIN
     Route: 062

REACTIONS (10)
  - Tooth extraction [Unknown]
  - Tumour excision [Unknown]
  - Spinal fracture [Unknown]
  - Breast cancer [Unknown]
  - Abdominal operation [Unknown]
  - Abdominal pain [Unknown]
  - Ovarian cyst [Unknown]
  - Intestinal resection [Unknown]
  - Pain in jaw [Unknown]
  - Abdominal adhesions [Unknown]
